FAERS Safety Report 4803240-2 (Version None)
Quarter: 2005Q4

REPORT INFORMATION
  Report Type: 
  Country: None (occurrence: None)
  Receive Date: 20051013
  Receipt Date: 20051013
  Transmission Date: 20060501
  Serious: Yes (Other)
  Sender: FDA-Public Use
  Company Number: USA050596999

PATIENT
  Age: 44 Year
  Sex: Female

DRUGS (7)
  1. CYMBALTA [Suspect]
     Indication: DEPRESSION
     Dosage: 60 MG DAY
     Dates: start: 20040101
  2. PROVIGIL [Concomitant]
  3. BENICAR [Concomitant]
  4. ATENOLOL [Concomitant]
  5. BENADRYL [Concomitant]
  6. MIDRIN [Concomitant]
  7. ZANAFLEX [Concomitant]

REACTIONS (4)
  - ANXIETY [None]
  - PALPITATIONS [None]
  - PHAEOCHROMOCYTOMA [None]
  - SINUS TACHYCARDIA [None]
